FAERS Safety Report 4764171-X (Version None)
Quarter: 2005Q3

REPORT INFORMATION
  Report Type: 
  Country: None (occurrence: None)
  Receive Date: 20050901
  Receipt Date: 20050705
  Transmission Date: 20060218
  Serious: Yes (Other)
  Sender: FDA-Public Use
  Company Number: 200510763BWH

PATIENT
  Age: 59 Year
  Sex: Male

DRUGS (16)
  1. LEVITRA [Suspect]
     Indication: ERECTILE DYSFUNCTION
     Dosage: 10 MG ONCE ORAL
     Route: 048
     Dates: start: 20050401
  2. PROVENTIL [Concomitant]
  3. KLONAZEPAM [Concomitant]
  4. ZETIA [Concomitant]
  5. INSPRA [Concomitant]
  6. BUMEX [Concomitant]
  7. FOSAMAX [Concomitant]
  8. TOPROL-XL [Concomitant]
  9. POTASSIUM [Concomitant]
  10. SINGULAIR [Concomitant]
  11. ZYRTEC [Concomitant]
  12. MAVIK [Concomitant]
  13. LIPITOR [Concomitant]
  14. FLEXERIL [Concomitant]
  15. COUMADIN [Concomitant]
  16. PROTONIX [Concomitant]

REACTIONS (1)
  - SYNCOPE [None]
